FAERS Safety Report 8784641 (Version 3)
Quarter: 2013Q1

REPORT INFORMATION
  Report Type: Spontaneous
  Country: DE (occurrence: None)
  Receive Date: 20120831
  Receipt Date: 20121031
  Transmission Date: 20140127
  Serious: Yes (Hospitalization)
  Sender: FDA-Public Use
  Company Number: DE-1193313

PATIENT
  Age: 62 Year
  Sex: Female
  Weight: 82 kg

DRUGS (3)
  1. AZOPT 1 % OPHTHALMIC SUSPENSION (AZOPT 1%) [Suspect]
     Indication: GLAUCOMA
     Route: 047
     Dates: start: 2005, end: 20120718
  2. GENTEAL MILD [Suspect]
     Indication: DRY EYE
     Dosage: (1 DF 5X/DAY OU OPHTHALMIC)
     Route: 047
     Dates: end: 20120718
  3. TAFLOTAN SINE [Concomitant]

REACTIONS (6)
  - Ulcerative keratitis [None]
  - Eye infection bacterial [None]
  - Conjunctivitis [None]
  - Ocular hyperaemia [None]
  - Lacrimation increased [None]
  - Reaction to preservatives [None]
